FAERS Safety Report 4899376-0 (Version None)
Quarter: 2006Q1

REPORT INFORMATION
  Report Type: 
  Country: None (occurrence: None)
  Receive Date: 20060131
  Receipt Date: 20060119
  Transmission Date: 20060701
  Serious: Yes (Hospitalization)
  Sender: FDA-Public Use
  Company Number: 2006011322

PATIENT
  Age: 55 Year
  Sex: Male

DRUGS (1)
  1. VIAGRA [Suspect]
     Indication: ILL-DEFINED DISORDER
     Dosage: 16.6 MG (AS NECESSARY), ORAL
     Route: 048

REACTIONS (1)
  - CEREBRAL INFARCTION [None]
